FAERS Safety Report 8277330-9 (Version None)
Quarter: 2012Q2

REPORT INFORMATION
  Report Type: 
  Country: None (occurrence: None)
  Receive Date: 20120412
  Receipt Date: 20120406
  Transmission Date: 20120825
  Serious: Yes (Hospitalization)
  Sender: FDA-Public Use
  Company Number: CN-GLAXOSMITHKLINE-B0794793A

PATIENT
  Age: 56 Year
  Sex: Male

DRUGS (1)
  1. FLUTICASONE PROPIONATE/SALMETEROL [Suspect]
     Indication: BLISTER
     Dosage: 1PUFF TWICE PER DAY
     Route: 055
     Dates: start: 20070101

REACTIONS (1)
  - HOSPITALISATION [None]
